FAERS Safety Report 12170412 (Version 1)
Quarter: 2016Q1

REPORT INFORMATION
  Report Type: Spontaneous
  Country: TW (occurrence: TW)
  Receive Date: 20160311
  Receipt Date: 20160311
  Transmission Date: 20160526
  Serious: Yes (Other)
  Sender: FDA-Public Use
  Company Number: TW-ACCORD-038715

PATIENT
  Age: 45 Year
  Sex: Male

DRUGS (4)
  1. MYCOPHENOLIC ACID. [Suspect]
     Active Substance: MYCOPHENOLIC ACID
     Indication: TRANSPLANT
     Dosage: RECEIVED SYSTEMICALLY, AS MAINTENANCE THERAPY FOR IMMUNOSUPPRESSION.
  2. PREDNISONE. [Suspect]
     Active Substance: PREDNISONE
     Indication: TRANSPLANT
     Dosage: RECEIVED SYSTEMICALLY, AS MAINTENANCE THERAPY FOR IMMUNOSUPPRESSION.
  3. TACROLIMUS. [Suspect]
     Active Substance: TACROLIMUS
     Indication: TRANSPLANT
     Dosage: RECEIVED AS SYSTEMIC AND TOPICAL TACROLIMUS AS MAINTENANCE THERAPY FOR IMMUNOSUPPRESSION.
  4. CLOBETASOL [Concomitant]
     Active Substance: CLOBETASOL
     Indication: TRANSPLANT
     Dosage: RECEIVED TOPICALLY, AS MAINTENANCE THERAPY FOR IMMUNOSUPPRESSION.
     Route: 061

REACTIONS (3)
  - Lymphadenopathy [Unknown]
  - Cytomegalovirus infection [Unknown]
  - Cellulitis [Unknown]
